FAERS Safety Report 5240550-1 (Version None)
Quarter: 2007Q1

REPORT INFORMATION
  Report Type: 
  Country: None (occurrence: None)
  Receive Date: 20061208
  Receipt Date: 20060420
  Transmission Date: 20070707
  Serious: Yes (Other)
  Sender: FDA-Public Use
  Company Number: 2006UW07124

PATIENT
  Age: 52 Year
  Sex: Male
  Weight: 90.718 kg

DRUGS (5)
  1. CRESTOR [Suspect]
     Indication: BLOOD CHOLESTEROL INCREASED
     Dosage: 5 MG PO
     Route: 048
  2. METFORMIN HCL [Concomitant]
  3. DIOVAN [Concomitant]
  4. ALTACE [Concomitant]
  5. TOPROL-XL [Concomitant]

REACTIONS (1)
  - AMNESIA [None]
